FAERS Safety Report 15707164 (Version 2)
Quarter: 2018Q4

REPORT INFORMATION
  Report Type: Spontaneous
  Country: JP (occurrence: JP)
  Receive Date: 20181210
  Receipt Date: 20181210
  Transmission Date: 20190205
  Serious: Yes (Death, Other)
  Sender: FDA-Public Use
  Company Number: PHJP2018JP020524

PATIENT
  Age: 74 Year
  Sex: Male

DRUGS (2)
  1. PREDNISOLONE. [Concomitant]
     Active Substance: PREDNISOLONE
     Indication: NEPHROTIC SYNDROME
     Dosage: UNK
     Route: 065
  2. CICLOSPORIN [Suspect]
     Active Substance: CYCLOSPORINE
     Indication: NEPHROTIC SYNDROME
     Dosage: UNK
     Route: 065

REACTIONS (9)
  - Transaminases increased [Fatal]
  - Decreased appetite [Fatal]
  - Diffuse large B-cell lymphoma [Fatal]
  - Renal impairment [Fatal]
  - Tremor [Fatal]
  - Persecutory delusion [Fatal]
  - Cerebral infarction [Fatal]
  - Shock [Unknown]
  - Dehydration [None]
